FAERS Safety Report 9258829 (Version 2)
Quarter: 2013Q2

REPORT INFORMATION
  Report Type: Spontaneous
  Country: DK (occurrence: DK)
  Receive Date: 20130426
  Receipt Date: 20130513
  Transmission Date: 20140414
  Serious: Yes (Other)
  Sender: FDA-Public Use
  Company Number: DK-TEVA-399774ISR

PATIENT
  Age: 66 Year
  Sex: Female
  Weight: 70 kg

DRUGS (10)
  1. EMTHEXATE [Suspect]
     Indication: ANKYLOSING SPONDYLITIS
     Route: 048
     Dates: start: 20030805
  2. HUMIRA [Suspect]
     Indication: ANKYLOSING SPONDYLITIS
     Dosage: 40 MG EVERY SECOND WEEK.
     Dates: start: 20050111, end: 20050111
  3. ENBREL [Suspect]
     Indication: ANKYLOSING SPONDYLITIS
     Dates: start: 20040511, end: 20041130
  4. REMICADE [Suspect]
     Indication: ANKYLOSING SPONDYLITIS
     Dates: start: 20030805, end: 20040210
  5. REMICADE [Suspect]
     Indication: ANKYLOSING SPONDYLITIS
     Dates: start: 20050804, end: 20100201
  6. SIMPONI [Suspect]
     Indication: ANKYLOSING SPONDYLITIS
     Dosage: 50 MG MONTHLY.
     Dates: start: 20100603, end: 20111001
  7. PREDNISOLONE [Concomitant]
     Dates: start: 20040511, end: 20040511
  8. PREDNISOLONE [Concomitant]
     Dates: start: 20050111, end: 20050111
  9. PREDNISOLONE [Concomitant]
     Dates: start: 20100216, end: 20110331
  10. SALAZOPYRIN [Concomitant]
     Route: 048
     Dates: start: 20100216, end: 20110624

REACTIONS (1)
  - Malignant melanoma [Recovered/Resolved]
